FAERS Safety Report 8176266-1 (Version None)
Quarter: 2012Q1

REPORT INFORMATION
  Report Type: 
  Country: None (occurrence: None)
  Receive Date: 20120301
  Receipt Date: 20120222
  Transmission Date: 20120608
  Serious: Yes (Other)
  Sender: FDA-Public Use
  Company Number: CN-JNJFOC-20120212389

PATIENT
  Age: 56 Year
  Sex: Female

DRUGS (2)
  1. ULTRACET [Suspect]
     Indication: PAIN
     Route: 048
     Dates: start: 20120221
  2. CELECOXIB [Concomitant]
     Indication: PRODUCT USED FOR UNKNOWN INDICATION
     Dosage: 1 CAPSULE PER DAY
     Route: 065

REACTIONS (7)
  - PALPITATIONS [None]
  - SOMNOLENCE [None]
  - ASTHENIA [None]
  - NAUSEA [None]
  - SKIN DISCOLOURATION [None]
  - DIARRHOEA [None]
  - RETCHING [None]
